FAERS Safety Report 5456571-X (Version None)
Quarter: 2007Q3

REPORT INFORMATION
  Report Type: 
  Country: None (occurrence: None)
  Receive Date: 20070918
  Receipt Date: 20070228
  Transmission Date: 20080115
  Serious: Yes (Disabling)
  Sender: FDA-Public Use
  Company Number: US-ASTRAZENECA-2006UW25408

PATIENT
  Age: 16246 Day
  Sex: Male
  Weight: 125 kg

DRUGS (4)
  1. SEROQUEL [Suspect]
     Indication: SCHIZOPHRENIA, PARANOID TYPE
     Route: 048
     Dates: start: 20030425, end: 20040719
  2. CLOZARIL [Concomitant]
     Dates: start: 19960601, end: 19971001
  3. GEODON [Concomitant]
     Dates: start: 20040128, end: 20040818
  4. ZYPREXA [Concomitant]
     Dosage: 2.5-10 MG
     Dates: start: 19980420, end: 20030617

REACTIONS (1)
  - TYPE 2 DIABETES MELLITUS [None]
